FAERS Safety Report 13657440 (Version 6)
Quarter: 2018Q4

REPORT INFORMATION
  Report Type: Report from Study
  Country: US (occurrence: US)
  Receive Date: 20170615
  Receipt Date: 20181025
  Transmission Date: 20190204
  Serious: Yes (Other)
  Sender: FDA-Public Use
  Company Number: US-THERATECHNOLOGIES, INC.-TH-2017-00247

PATIENT

DRUGS (12)
  1. ANDROGEL [Concomitant]
     Active Substance: TESTOSTERONE
     Dosage: 1.82 % PERCENT, UNK
  2. PRAVASTATIN. [Concomitant]
     Active Substance: PRAVASTATIN
     Dosage: 40 MG MILLIGRAM(S), UNK
  3. TRIAMT /HCTZ [Concomitant]
     Dosage: 37.5-25, UNK
  4. CIALIS [Concomitant]
     Active Substance: TADALAFIL
     Dosage: 5 MG MILLIGRAM(S), UNK
  5. IBUPROFEN. [Concomitant]
     Active Substance: IBUPROFEN
     Dosage: 600 MG MILLIGRAM(S), UNK
  6. ESZOPICLONE. [Concomitant]
     Active Substance: ESZOPICLONE
     Dosage: 3 MG MILLIGRAM(S), UNK
  7. CELECOXIB. [Concomitant]
     Active Substance: CELECOXIB
     Dosage: UNK
  8. EGRIFTA [Suspect]
     Active Substance: TESAMORELIN
     Indication: HIV INFECTION
     Dosage: 2 MG MILLIGRAM(S), QD
     Route: 058
     Dates: start: 20170324
  9. CARISOPRODOL. [Concomitant]
     Active Substance: CARISOPRODOL
     Dosage: 350 MG MILLIGRAM(S), UNK
  10. EGRIFTA [Suspect]
     Active Substance: TESAMORELIN
     Indication: LIPODYSTROPHY ACQUIRED
  11. BUPROPION HYDROCHLORIDE XL [Concomitant]
     Active Substance: BUPROPION HYDROCHLORIDE
     Dosage: 300 MG MILLIGRAM(S), UNK
  12. OTHER THERAPEUTIC PRODUCTS [Concomitant]
     Active Substance: UNSPECIFIED INGREDIENT
     Dosage: UNK

REACTIONS (6)
  - Prostate examination abnormal [Not Recovered/Not Resolved]
  - Product dose omission [Unknown]
  - Product dose omission [Recovered/Resolved]
  - Product dose omission [Not Recovered/Not Resolved]
  - Influenza [Recovered/Resolved]
  - Product dose omission [Unknown]

NARRATIVE: CASE EVENT DATE: 201707
